FAERS Safety Report 8096530-4 (Version None)
Quarter: 2012Q1

REPORT INFORMATION
  Report Type: 
  Country: None (occurrence: None)
  Receive Date: 20120129
  Receipt Date: 20111205
  Transmission Date: 20120608
  Serious: No
  Sender: FDA-Public Use
  Company Number: US-ABBOTT-11P-163-0880905-00

PATIENT
  Age: 76 Year
  Sex: Female

DRUGS (6)
  1. ACTONEL [Concomitant]
     Indication: BLOOD PRESSURE
  2. HUMIRA [Suspect]
     Indication: RHEUMATOID ARTHRITIS
     Dates: start: 20111110
  3. PREDNISONE TAB [Concomitant]
     Indication: PRODUCT USED FOR UNKNOWN INDICATION
  4. LISINOPRIL [Concomitant]
     Indication: HYPERTENSION
  5. LEVOTHYROXINE SODIUM [Concomitant]
     Indication: PRODUCT USED FOR UNKNOWN INDICATION
     Dosage: 75 MCG - 6 DAYS PER WEEK
  6. CITALOPRAM [Concomitant]
     Indication: MUSCLE RELAXANT THERAPY

REACTIONS (5)
  - DIZZINESS [None]
  - FATIGUE [None]
  - ASTHENIA [None]
  - INFLUENZA LIKE ILLNESS [None]
  - HYPERTENSION [None]
